FAERS Safety Report 8181624-5 (Version None)
Quarter: 2012Q1

REPORT INFORMATION
  Report Type: 
  Country: None (occurrence: None)
  Receive Date: 20120301
  Receipt Date: 20120301
  Transmission Date: 20120608
  Serious: No
  Sender: FDA-Public Use
  Company Number: None

PATIENT
  Age: 70 Year
  Sex: Female
  Weight: 87.9978 kg

DRUGS (2)
  1. MECLIZINE [Suspect]
     Indication: VERTIGO
     Dosage: 1 TABLET 3 X DAILEY TOOK 1 TAB AT BEDTIME
     Dates: start: 20111014
  2. MECLIZINE [Suspect]
     Indication: VERTIGO
     Dosage: 1 TABLET 3 X DAILEY TOOK 1 TAB AT BEDTIME
     Dates: start: 20101014

REACTIONS (1)
  - HALLUCINATION, VISUAL [None]
